FAERS Safety Report 12443752 (Version 1)
Quarter: 2016Q2

REPORT INFORMATION
  Report Type: Spontaneous
  Country: JP (occurrence: JP)
  Receive Date: 20160607
  Receipt Date: 20160607
  Transmission Date: 20160815
  Serious: Yes (Death, Other)
  Sender: FDA-Public Use
  Company Number: PHJP1900JP001468

PATIENT
  Age: 7 Year
  Sex: Male

DRUGS (4)
  1. TEGRETOL [Suspect]
     Active Substance: CARBAMAZEPINE
     Indication: EPILEPSY
     Dosage: 250 MG, QD
     Route: 048
     Dates: start: 19780901, end: 19820731
  2. ALEVIATIN//PHENYTOIN [Concomitant]
     Indication: EPILEPSY
     Dosage: 120 MG, QD
     Route: 048
     Dates: start: 19771101, end: 19820731
  3. RIVOTRIL [Concomitant]
     Active Substance: CLONAZEPAM
     Indication: EPILEPSY
     Dosage: 0.3 MG, QD
     Route: 048
     Dates: start: 19800401, end: 19820731
  4. DEPAKENE//VALPROATE SODIUM [Concomitant]
     Indication: EPILEPSY
     Dosage: 500 MG, QD
     Route: 048
     Dates: start: 19790201, end: 19820731

REACTIONS (1)
  - Reye^s syndrome [Fatal]
